FAERS Safety Report 9557830 (Version 1)
Quarter: 2013Q3

REPORT INFORMATION
  Report Type: Spontaneous
  Country: US (occurrence: None)
  Receive Date: 20130726
  Receipt Date: 20130726
  Transmission Date: 20140515
  Serious: Yes (Hospitalization)
  Sender: FDA-Public Use
  Company Number: UTC-026843

PATIENT
  Age: 60 Year
  Sex: Male
  Weight: 118.1 kg

DRUGS (2)
  1. REMODULIN [Suspect]
     Indication: PULMONARY ARTERIAL HYPERTENSION
     Dosage: 0.095 UG/KG 1 IN 1 MIN
     Route: 058
     Dates: start: 20110924
  2. REVATIO (SILDENAFIL CITRATE) (UNKNOWN) (SILDENAFIL) [Suspect]

REACTIONS (1)
  - Pulmonary hypertension [None]
